FAERS Safety Report 20238156 (Version 1)
Quarter: 2021Q4

REPORT INFORMATION
  Report Type: Spontaneous
  Country: KR (occurrence: KR)
  Receive Date: 20211228
  Receipt Date: 20211228
  Transmission Date: 20220303
  Serious: Yes (Hospitalization)
  Sender: FDA-Public Use
  Company Number: KR-ELI_LILLY_AND_COMPANY-KR202112010996

PATIENT
  Age: 55 Year
  Sex: Female

DRUGS (2)
  1. HUMALOG [Suspect]
     Active Substance: INSULIN LISPRO
     Indication: Type 2 diabetes mellitus
     Dosage: 20 INTERNATIONAL UNIT, DAILY
     Route: 058
     Dates: start: 20160810, end: 20190822
  2. GLIMEPIRIDE [Suspect]
     Active Substance: GLIMEPIRIDE
     Indication: Type 2 diabetes mellitus
     Dosage: 1 DOSAGE FORM, DAILY
     Route: 048
     Dates: start: 20180301, end: 20190822

REACTIONS (1)
  - Hypoglycaemia unawareness [Recovered/Resolved]

NARRATIVE: CASE EVENT DATE: 20190822
